FAERS Safety Report 10915121 (Version 3)
Quarter: 2015Q2

REPORT INFORMATION
  Report Type: Spontaneous
  Country: MX (occurrence: MX)
  Receive Date: 20150315
  Receipt Date: 20150423
  Transmission Date: 20150821
  Serious: Yes (Hospitalization)
  Sender: FDA-Public Use
  Company Number: MX-ROCHE-1551359

PATIENT
  Age: 28 Year
  Sex: Female
  Weight: 75 kg

DRUGS (1)
  1. ZELBORAF [Suspect]
     Active Substance: VEMURAFENIB
     Indication: METASTATIC MALIGNANT MELANOMA
     Dosage: SUSPENDED DUE TO GASTRITIS AND DUODENITIS
     Route: 048
     Dates: start: 20141105, end: 201502

REACTIONS (7)
  - Intestinal obstruction [Recovered/Resolved]
  - Duodenitis [Recovering/Resolving]
  - Nausea [Recovered/Resolved]
  - Gastritis [Recovering/Resolving]
  - Intussusception [Recovered/Resolved]
  - Vomiting [Recovered/Resolved]
  - Gastrointestinal toxicity [Recovered/Resolved]

NARRATIVE: CASE EVENT DATE: 201412
